FAERS Safety Report 5025053-1 (Version None)
Quarter: 2006Q2

REPORT INFORMATION
  Report Type: 
  Country: None (occurrence: None)
  Receive Date: 20060613
  Receipt Date: 20060322
  Transmission Date: 20061013
  Serious: Yes (Death)
  Sender: FDA-Public Use
  Company Number: US-BRISTOL-MYERS SQUIBB COMPANY-13323431

PATIENT
  Age: 68 Year
  Sex: Female

DRUGS (16)
  1. COUMADIN [Suspect]
     Indication: IMPLANTABLE DEFIBRILLATOR INSERTION
     Route: 048
     Dates: start: 20040501
  2. ALDACTONE [Concomitant]
  3. BETAPACE [Concomitant]
  4. DEMEROL [Concomitant]
     Indication: PAIN
  5. FLURAZEPAM [Concomitant]
  6. FUROSEMIDE [Concomitant]
  7. LANOXIN [Concomitant]
  8. NITROSTAT [Concomitant]
     Indication: CHEST PAIN
     Dosage: DOSE: 0.4 MG (1/150 GR) TAB 100 TAB DISSOLVE UNDER TONGUE EVERY 5 MINS UP TO 3 TIMES FOR CHEST PAIN
  9. PHENERGAN HCL [Concomitant]
     Indication: NAUSEA
  10. POTASSIUM CHLORIDE [Concomitant]
     Route: 048
  11. SINEQUAN [Concomitant]
  12. SYNTHROID [Concomitant]
  13. TOPROL-XL [Concomitant]
  14. TYLENOL (CAPLET) [Concomitant]
  15. VALIUM [Concomitant]
  16. ZESTRIL [Concomitant]

REACTIONS (3)
  - ARTERIOSCLEROSIS CORONARY ARTERY [None]
  - CARDIAC ARREST [None]
  - HYPERCHOLESTEROLAEMIA [None]
